FAERS Safety Report 11509767 (Version 1)
Quarter: 2015Q3

REPORT INFORMATION
  Report Type: Spontaneous
  Country: US (occurrence: US)
  Receive Date: 20150915
  Receipt Date: 20150915
  Transmission Date: 20151125
  Serious: Yes (Death, Other)
  Sender: FDA-Public Use
  Company Number: US-JNJFOC-20090701666

PATIENT
  Age: 43 Year
  Sex: Male

DRUGS (4)
  1. TYLENOL WITH CODEINE [Suspect]
     Active Substance: ACETAMINOPHEN\CODEINE PHOSPHATE
     Indication: PAIN
     Route: 048
  2. UNSPECIFIED 500 MG ACETAMINOPHEN [Suspect]
     Active Substance: ACETAMINOPHEN
     Indication: PAIN
     Route: 048
  3. UNSPECIFIED 500 MG ACETAMINOPHEN [Suspect]
     Active Substance: ACETAMINOPHEN
     Indication: CLAVICLE FRACTURE
     Route: 048
  4. TYLENOL WITH CODEINE [Suspect]
     Active Substance: ACETAMINOPHEN\CODEINE PHOSPHATE
     Indication: CLAVICLE FRACTURE
     Route: 048

REACTIONS (5)
  - Hallucination [Fatal]
  - Overdose [Fatal]
  - Coma hepatic [Fatal]
  - Apnoea [Fatal]
  - Acute hepatic failure [Fatal]
